FAERS Safety Report 8827394 (Version 1)
Quarter: 2012Q4

REPORT INFORMATION
  Report Type: 
  Country: AU (occurrence: AU)
  Receive Date: 20121005
  Receipt Date: 20121005
  Transmission Date: 20130627
  Serious: Yes (Other)
  Sender: FDA-Public Use
  Company Number: AU-ASTRAZENECA-2012SE75070

PATIENT
  Age: 72 Year
  Sex: Female

DRUGS (8)
  1. NEXIUM [Suspect]
     Route: 048
     Dates: start: 20120112
  2. ASPIRIN [Concomitant]
  3. ATORVASTATIN [Concomitant]
  4. CHOLECALCIFEROL [Concomitant]
  5. ESOMEPRAZOLE [Concomitant]
  6. FISH OIL [Concomitant]
  7. OESTRIOL [Concomitant]
     Dosage: 1 MG/G, TWICE A WEEK
  8. GLUCOSAMINE HYDROCHLORIDE [Concomitant]

REACTIONS (2)
  - Haemorrhoidal haemorrhage [Unknown]
  - Dyspnoea exertional [Recovered/Resolved]
